FAERS Safety Report 6970861-0 (Version None)
Quarter: 2010Q3

REPORT INFORMATION
  Report Type: 
  Country: None (occurrence: None)
  Receive Date: 20100908
  Receipt Date: 20100823
  Transmission Date: 20110219
  Serious: Yes (Hospitalization, Other)
  Sender: FDA-Public Use
  Company Number: B0666777A

PATIENT
  Age: 34 Year
  Sex: Female

DRUGS (3)
  1. PAROXETINE HCL [Suspect]
     Indication: MAJOR DEPRESSION
     Dosage: 20MG PER DAY
     Route: 065
  2. ESCITALOPRAM [Suspect]
     Indication: MAJOR DEPRESSION
     Dosage: 10MG PER DAY
     Route: 065
  3. OXCARBAZEPINE [Suspect]
     Indication: MAJOR DEPRESSION
     Dosage: 1TAB PER DAY
     Route: 048

REACTIONS (10)
  - ABORTION INDUCED [None]
  - AGITATION [None]
  - ASTHENIA [None]
  - DECREASED APPETITE [None]
  - DEPRESSION [None]
  - DRUG EXPOSURE DURING PREGNANCY [None]
  - DRUG INEFFECTIVE [None]
  - FEELING GUILTY [None]
  - INSOMNIA [None]
  - SUICIDAL IDEATION [None]
